FAERS Safety Report 11848322 (Version 1)
Quarter: 2015Q4

REPORT INFORMATION
  Report Type: Spontaneous
  Country: US (occurrence: US)
  Receive Date: 20151217
  Receipt Date: 20151217
  Transmission Date: 20160305
  Serious: No
  Sender: FDA-Public Use
  Company Number: US-HOSPIRA-2648289

PATIENT
  Age: 54 Year
  Sex: Male
  Weight: 95.25 kg

DRUGS (4)
  1. METHOCARBAMOL. [Concomitant]
     Active Substance: METHOCARBAMOL
     Indication: MUSCLE RELAXANT THERAPY
     Dosage: 1-2 TIMES DAILY, 8 YEARS
     Route: 048
  2. PETHIDINE HYDROCHLORIDE [Suspect]
     Active Substance: MEPERIDINE
     Indication: PAIN
     Dosage: 8 YEARS
     Route: 030
  3. LISINOPRIL. [Concomitant]
     Active Substance: LISINOPRIL
     Indication: BLOOD PRESSURE MANAGEMENT
     Dosage: MORNING AND EVENING, 5-6 YEARS
     Route: 048
  4. TRAMADOL. [Concomitant]
     Active Substance: TRAMADOL
     Indication: PAIN
     Dosage: 2-3 TIMES DAILY, 3 YEARS
     Route: 048

REACTIONS (4)
  - Product package associated injury [Recovered/Resolved]
  - Product friable [Recovered/Resolved]
  - Laceration [Recovered/Resolved]
  - Haemorrhage [Recovered/Resolved]

NARRATIVE: CASE EVENT DATE: 20141112
